FAERS Safety Report 25202619 (Version 2)
Quarter: 2025Q2

REPORT INFORMATION
  Report Type: Report from Study
  Country: KR (occurrence: KR)
  Receive Date: 20250416
  Receipt Date: 20250425
  Transmission Date: 20250716
  Serious: Yes (Hospitalization)
  Sender: MYLAN
  Company Number: KR-MYLANLABS-2025M1031028

PATIENT
  Age: 68 Year
  Sex: Female
  Weight: 50.6 kg

DRUGS (14)
  1. PRETOMANID [Suspect]
     Active Substance: PRETOMANID
     Indication: Tuberculosis
     Dosage: 200 MILLIGRAM, QD
     Dates: start: 20241120
  2. BEDAQUILINE [Suspect]
     Active Substance: BEDAQUILINE
     Indication: Tuberculosis
  3. LINEZOLID [Suspect]
     Active Substance: LINEZOLID
     Indication: Tuberculosis
     Dosage: 600 MILLIGRAM, QD
     Dates: start: 20241120, end: 20250205
  4. LINEZOLID [Suspect]
     Active Substance: LINEZOLID
     Dosage: 300 MILLIGRAM, QD
     Dates: start: 20250206, end: 20250212
  5. LINEZOLID [Suspect]
     Active Substance: LINEZOLID
     Dosage: 300 MILLIGRAM, QD
     Dates: start: 20250228
  6. Amvaltan [Concomitant]
     Indication: Hypertension
     Dosage: UNK, QD
     Dates: start: 2024
  7. NEBIVOLOL [Concomitant]
     Active Substance: NEBIVOLOL
     Indication: Hypertension
     Dosage: UNK QD
     Dates: start: 2024
  8. LEVOTHYROXINE SODIUM [Concomitant]
     Active Substance: LEVOTHYROXINE SODIUM
     Indication: Hypothyroidism
     Dosage: UNK, QD
     Dates: start: 2024
  9. Pennel [Concomitant]
     Indication: Prophylaxis
     Dosage: UNK, BID
     Dates: start: 20241114
  10. Kalid [Concomitant]
     Indication: Hyperkalaemia
     Dosage: UNK, BID
     Dates: start: 20241114, end: 20250205
  11. Kalid [Concomitant]
     Dosage: UNK, QD
     Dates: start: 20250206
  12. Mosa [Concomitant]
     Indication: Nausea
     Dosage: UNK, BID
     Dates: start: 20250206
  13. FERROUS SULFATE\PROTEASE [Concomitant]
     Active Substance: FERROUS SULFATE\PROTEASE
     Indication: Anaemia
     Dosage: UNK, BID
     Dates: start: 20250206
  14. PYRIDOXINE [Concomitant]
     Active Substance: PYRIDOXINE
     Indication: Prophylaxis
     Dosage: UNK, BID
     Dates: start: 20241120

REACTIONS (1)
  - Cardiac failure [Recovering/Resolving]

NARRATIVE: CASE EVENT DATE: 20250301
